FAERS Safety Report 4659194-5 (Version None)
Quarter: 2005Q2

REPORT INFORMATION
  Report Type: 
  Country: None (occurrence: None)
  Receive Date: 20050510
  Receipt Date: 20050502
  Transmission Date: 20051028
  Serious: Yes (Death)
  Sender: FDA-Public Use
  Company Number: S05-USA-02334-01

PATIENT
  Sex: Male

DRUGS (1)
  1. CELEXA [Suspect]
     Dates: start: 20020807, end: 20020813

REACTIONS (1)
  - ADVERSE DRUG REACTION [None]
